FAERS Safety Report 4406263-0 (Version None)
Quarter: 2004Q3

REPORT INFORMATION
  Report Type: 
  Country: None (occurrence: None)
  Receive Date: 20040723
  Receipt Date: 20030529
  Transmission Date: 20050211
  Serious: No
  Sender: FDA-Public Use
  Company Number: US-GLAXOSMITHKLINE-A0409959A

PATIENT
  Age: 76 Year
  Sex: Female

DRUGS (8)
  1. AVANDIA [Suspect]
     Route: 048
     Dates: start: 20030301
  2. GEMFIBROZIL [Concomitant]
  3. METFORMIN HCL [Concomitant]
  4. AVALIDE [Concomitant]
  5. ISOSORBIDE [Concomitant]
  6. NEXIUM [Concomitant]
  7. GLIPIZIDE [Concomitant]
  8. METOPROLOL [Concomitant]

REACTIONS (5)
  - EYE SWELLING [None]
  - NAUSEA [None]
  - OEDEMA PERIPHERAL [None]
  - SWELLING FACE [None]
  - WEIGHT INCREASED [None]
